FAERS Safety Report 8062351 (Version 2)
Quarter: 2012Q4

REPORT INFORMATION
  Report Type: 
  Country: US (occurrence: US)
  Receive Date: 20110801
  Receipt Date: 20120910
  Transmission Date: 20130627
  Serious: Yes (Other)
  Sender: FDA-Public Use
  Company Number: US-US-EMD SERONO, INC.-7073240

PATIENT
  Age: 51 None
  Sex: Female

DRUGS (1)
  1. REBIF [Suspect]
     Indication: MULTIPLE SCLEROSIS
     Route: 058
     Dates: start: 20031203

REACTIONS (8)
  - Muscle enzyme increased [Not Recovered/Not Resolved]
  - Sensation of heaviness [Unknown]
  - Musculoskeletal discomfort [Unknown]
  - Injection site atrophy [Unknown]
  - Arthralgia [Unknown]
  - Injection site pain [Unknown]
  - Injection site erythema [Unknown]
  - Influenza like illness [Unknown]
